FAERS Safety Report 9125511 (Version 1)
Quarter: 2013Q1

REPORT INFORMATION
  Report Type: Spontaneous
  Country: ES (occurrence: ES)
  Receive Date: 20130227
  Receipt Date: 20130227
  Transmission Date: 20140127
  Serious: Yes (Other)
  Sender: FDA-Public Use
  Company Number: ES-VIIV HEALTHCARE LIMITED-B0870576A

PATIENT
  Age: 52 Year
  Sex: Male

DRUGS (3)
  1. KIVEXA [Suspect]
     Indication: PRODUCT USED FOR UNKNOWN INDICATION
     Dosage: 1U PER DAY
     Route: 065
     Dates: start: 201204
  2. RITONAVIR [Concomitant]
  3. ATAZANAVIR [Concomitant]

REACTIONS (4)
  - Psoriasis [Recovering/Resolving]
  - Pustular psoriasis [Recovering/Resolving]
  - Hyperkeratosis [Recovering/Resolving]
  - Rash erythematous [Recovering/Resolving]
